FAERS Safety Report 21378771 (Version 4)
Quarter: 2023Q4

REPORT INFORMATION
  Report Type: Report from Study
  Country: DE (occurrence: DE)
  Receive Date: 20220927
  Receipt Date: 20231221
  Transmission Date: 20240110
  Serious: Yes (Hospitalization)
  Sender: FDA-Public Use
  Company Number: DE-ABBVIE-4130333

PATIENT
  Age: 67 Year
  Sex: Female

DRUGS (13)
  1. RINVOQ [Suspect]
     Active Substance: UPADACITINIB
     Indication: Rheumatoid arthritis
     Route: 048
     Dates: start: 202011, end: 20220802
  2. RINVOQ [Suspect]
     Active Substance: UPADACITINIB
     Indication: Rheumatoid arthritis
     Route: 048
     Dates: start: 20221015
  3. METHOTREXATE SODIUM [Concomitant]
     Active Substance: METHOTREXATE SODIUM
     Indication: Product used for unknown indication
     Dosage: START DATE TEXT: BEFORE 07APR2016, STOP DATE TEXT: BETWEEN13JUN2016 AND 19JAN2017
  4. METHOTREXATE SODIUM [Concomitant]
     Active Substance: METHOTREXATE SODIUM
     Indication: Product used for unknown indication
     Dosage: START DATE TEXT: BEFORE 27JAN2016, STOP DATE TEXT: BETWEEN 27JAN2016 AND 7APR2016
     Dates: end: 2016
  5. METHOTREXATE SODIUM [Concomitant]
     Active Substance: METHOTREXATE SODIUM
     Indication: Product used for unknown indication
     Dosage: BEFORE 19JAN2017, STOP DATE TEXT: BETWEEN 19JAN2017 AND 2JUN2017
     Dates: end: 2017
  6. METHOTREXATE SODIUM [Concomitant]
     Active Substance: METHOTREXATE SODIUM
     Indication: Product used for unknown indication
     Dosage: START DATE TEXT: BEFORE 02JUN2017, STOP DATE TEXT: BETWEEN 7AUG2019 AND 12FEB2020
  7. METHOTREXATE SODIUM [Concomitant]
     Active Substance: METHOTREXATE SODIUM
     Indication: Product used for unknown indication
     Dosage: START DATE TEXT: BEFORE 12FEB2020, STOP DATE TEXT: BETWEEN 12FEB2020 AD 11AUG2020
     Dates: end: 2020
  8. METHOTREXATE SODIUM [Concomitant]
     Active Substance: METHOTREXATE SODIUM
     Indication: Product used for unknown indication
     Dosage: START DATE TEXT: BEFORE 11AUG2020, STOP DATE TEXT: BETWEEN21JAN2021 AND 26JUL2021
     Dates: end: 2021
  9. CHOLECALCIFEROL [Concomitant]
     Active Substance: CHOLECALCIFEROL
     Indication: Product used for unknown indication
  10. METOPROLOL [Concomitant]
     Active Substance: METOPROLOL
     Indication: Product used for unknown indication
  11. CALCIUM [Concomitant]
     Active Substance: CALCIUM
     Indication: Product used for unknown indication
  12. METAMIZOL [Concomitant]
     Active Substance: METAMIZOLE SODIUM
     Indication: Product used for unknown indication
  13. LEVOTHYROXINE SODIUM [Concomitant]
     Active Substance: LEVOTHYROXINE SODIUM
     Indication: Product used for unknown indication

REACTIONS (15)
  - Osteoarthritis [Recovered/Resolved]
  - COVID-19 pneumonia [Recovered/Resolved]
  - Reactive gastropathy [Recovered/Resolved]
  - Night sweats [Unknown]
  - Thrombocytosis [Unknown]
  - COVID-19 [Unknown]
  - Hiatus hernia [Unknown]
  - Thrombosed varicose vein [Unknown]
  - Alveolitis [Recovered/Resolved]
  - Pneumonia [Recovered/Resolved]
  - Immunodeficiency common variable [Unknown]
  - Escherichia infection [Unknown]
  - Weight decreased [Unknown]
  - Decreased appetite [Unknown]
  - Post-acute COVID-19 syndrome [Recovered/Resolved]

NARRATIVE: CASE EVENT DATE: 20220101
